FAERS Safety Report 24523772 (Version 1)
Quarter: 2024Q4

REPORT INFORMATION
  Report Type: Spontaneous
  Country: US (occurrence: US)
  Receive Date: 20241018
  Receipt Date: 20241018
  Transmission Date: 20250115
  Serious: No
  Sender: PFIZER
  Company Number: US-PFIZER INC-PV202400135041

PATIENT
  Age: 16 Year
  Sex: Male

DRUGS (2)
  1. PAXLOVID [Interacting]
     Active Substance: NIRMATRELVIR\RITONAVIR
     Indication: COVID-19 treatment
     Dosage: UNK
  2. GUANFACINE [Interacting]
     Active Substance: GUANFACINE
     Dosage: UNK

REACTIONS (2)
  - Hypotension [Unknown]
  - Drug interaction [Unknown]
